FAERS Safety Report 9807173 (Version 1)
Quarter: 2014Q1

REPORT INFORMATION
  Report Type: Report from Study
  Country: US (occurrence: US)
  Receive Date: 20140110
  Receipt Date: 20140110
  Transmission Date: 20141002
  Serious: Yes (Other)
  Sender: FDA-Public Use
  Company Number: US-ROCHE-1331673

PATIENT
  Age: 54 Year
  Sex: Male
  Weight: 108.96 kg

DRUGS (3)
  1. ACTEMRA [Suspect]
     Indication: RHEUMATOID ARTHRITIS
     Route: 042
     Dates: start: 201311
  2. ACTEMRA [Suspect]
     Route: 058
     Dates: start: 20131220
  3. NAPROXEN [Suspect]
     Indication: PRODUCT USED FOR UNKNOWN INDICATION
     Route: 065

REACTIONS (3)
  - Epistaxis [Recovered/Resolved]
  - Influenza [Unknown]
  - Fall [Unknown]
